FAERS Safety Report 10064528 (Version 1)
Quarter: 2014Q2

REPORT INFORMATION
  Report Type: Spontaneous
  Country: US (occurrence: US)
  Receive Date: 20140408
  Receipt Date: 20140408
  Transmission Date: 20141212
  Serious: No
  Sender: FDA-Public Use
  Company Number: US-TEVA-474321USA

PATIENT
  Sex: Male
  Weight: 69.92 kg

DRUGS (2)
  1. NUVIGIL [Suspect]
     Indication: SLEEP APNOEA SYNDROME
     Dates: start: 2013
  2. NUVIGIL [Suspect]
     Indication: NARCOLEPSY

REACTIONS (1)
  - Headache [Recovered/Resolved]
